FAERS Safety Report 21381645 (Version 2)
Quarter: 2022Q4

REPORT INFORMATION
  Report Type: Report from Study
  Country: US (occurrence: US)
  Receive Date: 20220927
  Receipt Date: 20221014
  Transmission Date: 20230113
  Serious: Yes (Other)
  Sender: FDA-Public Use
  Company Number: US-ABBVIE-22K-163-4303183-00

PATIENT
  Age: 72 Year
  Sex: Female

DRUGS (3)
  1. IMBRUVICA [Suspect]
     Active Substance: IBRUTINIB
     Indication: Chronic lymphocytic leukaemia
     Route: 048
     Dates: start: 20180413
  2. IMBRUVICA [Suspect]
     Active Substance: IBRUTINIB
     Indication: Chronic lymphocytic leukaemia
     Route: 048
     Dates: start: 202106
  3. IMBRUVICA [Suspect]
     Active Substance: IBRUTINIB
     Indication: Chronic lymphocytic leukaemia
     Route: 048
     Dates: start: 20210602

REACTIONS (11)
  - Skin cancer [Unknown]
  - Sinusitis [Unknown]
  - Eye swelling [Unknown]
  - White blood cell count increased [Unknown]
  - Eyelid ptosis [Unknown]
  - Lacrimation increased [Unknown]
  - Paranasal sinus mucosal hypertrophy [Unknown]
  - Unevaluable event [Unknown]
  - Ear discomfort [Unknown]
  - Eye pain [Unknown]
  - Cataract [Unknown]

NARRATIVE: CASE EVENT DATE: 20211201
